FAERS Safety Report 8808160 (Version 3)
Quarter: 2012Q4

REPORT INFORMATION
  Report Type: 
  Country: CA (occurrence: CA)
  Receive Date: 20120925
  Receipt Date: 20121128
  Transmission Date: 20130627
  Serious: Yes (Other)
  Sender: FDA-Public Use
  Company Number: CA-INCYTE CORPORATION-2012IN001839

PATIENT
  Sex: Female

DRUGS (1)
  1. JAKAVI [Suspect]
     Indication: MYELOFIBROSIS
     Dosage: 20 mg, UNK
     Route: 048
     Dates: start: 20111027

REACTIONS (4)
  - Terminal state [Unknown]
  - Splenomegaly [Unknown]
  - Upper gastrointestinal haemorrhage [Unknown]
  - Drug ineffective [None]
